FAERS Safety Report 24421025 (Version 2)
Quarter: 2024Q4

REPORT INFORMATION
  Report Type: Spontaneous
  Country: JP (occurrence: JP)
  Receive Date: 20241010
  Receipt Date: 20241218
  Transmission Date: 20250115
  Serious: Yes (Hospitalization, Other)
  Sender: ROCHE
  Company Number: JP-CHUGAI-2024034274

PATIENT
  Age: 8 Decade
  Sex: Male

DRUGS (1)
  1. BEVACIZUMAB [Suspect]
     Active Substance: BEVACIZUMAB
     Indication: Colon cancer
     Dosage: UNK
     Route: 042

REACTIONS (6)
  - Aneurysm [Recovered/Resolved]
  - Cholecystitis acute [Unknown]
  - Bile duct stone [Unknown]
  - Shock [Unknown]
  - Anaemia [Unknown]
  - Haemobilia [Unknown]
